FAERS Safety Report 21240159 (Version 1)
Quarter: 2022Q3

REPORT INFORMATION
  Report Type: Spontaneous
  Country: US (occurrence: None)
  Receive Date: 20220819
  Receipt Date: 20220819
  Transmission Date: 20221027
  Serious: Yes (Hospitalization)
  Sender: FDA-Public Use
  Company Number: None

PATIENT
  Age: 63 Year
  Sex: Female

DRUGS (1)
  1. LENALIDOMIDE [Suspect]
     Active Substance: LENALIDOMIDE
     Indication: Plasma cell myeloma
     Dosage: TAKE 1 CAPSULE BY MOUTH DAILY FOR 3 WEEKS ON, FOLLOWED BY 1 WEEK OFF?
     Route: 048
     Dates: start: 20210923

REACTIONS (2)
  - Paraesthesia [None]
  - Cerebrovascular accident [None]

NARRATIVE: CASE EVENT DATE: 20220818
